FAERS Safety Report 6700838-1 (Version None)
Quarter: 2010Q2

REPORT INFORMATION
  Report Type: 
  Country: None (occurrence: None)
  Receive Date: 20100428
  Receipt Date: 20100422
  Transmission Date: 20101027
  Serious: Yes (Hospitalization)
  Sender: FDA-Public Use
  Company Number: FR-TEVA-230672ISR

PATIENT
  Sex: Male

DRUGS (17)
  1. FLUOROURACIL [Suspect]
     Indication: RECTAL CANCER
     Route: 042
     Dates: start: 20090525, end: 20091005
  2. IRINOTECAN HYDROCHLORIDE [Suspect]
     Route: 042
     Dates: start: 20090525, end: 20091005
  3. BEVACIZUMAB [Suspect]
     Indication: RECTAL CANCER
     Route: 042
     Dates: start: 20090525, end: 20091005
  4. CALCIUM LEVOFOLINATE [Suspect]
     Indication: RECTAL CANCER
     Route: 058
     Dates: start: 20090525, end: 20091005
  5. METHYLPREDNISOLONE [Suspect]
     Indication: NAUSEA
     Route: 042
     Dates: start: 20090525, end: 20091005
  6. APREPITANT [Suspect]
     Indication: NAUSEA
     Dosage: 125 MG ON DAY 1, 80 MG ON DAYS 2 AND 3
     Route: 048
     Dates: start: 20090522, end: 20091005
  7. ONDANSETRON HYDROCHLORIDE [Suspect]
     Indication: NAUSEA
     Route: 042
     Dates: start: 20090525, end: 20091005
  8. ATROPINE [Suspect]
     Indication: NAUSEA
     Route: 058
     Dates: start: 20090525, end: 20091005
  9. ZOLPIDEM [Concomitant]
     Route: 048
  10. PAROXETINE HCL [Concomitant]
     Route: 048
  11. POTASSIUM CHLORIDE [Concomitant]
     Route: 048
  12. PARACETAMOL [Concomitant]
     Route: 048
  13. ACETORPHAN [Concomitant]
     Route: 048
  14. METOPIMAZINE [Concomitant]
     Route: 048
  15. TRIMEBUTINE MALEATE [Concomitant]
     Route: 048
  16. PANCREAS WITH PROTEOLYTIC, AMYLOLYTIC AND LIPOLYTIC ACTIVITY [Concomitant]
  17. LOPERAMIDE HYDROCHLORIDE [Concomitant]
     Route: 048

REACTIONS (1)
  - HEPATITIS CHOLESTATIC [None]
